FAERS Safety Report 16038492 (Version 1)
Quarter: 2019Q1

REPORT INFORMATION
  Report Type: Report from Study
  Country: JP (occurrence: JP)
  Receive Date: 20190305
  Receipt Date: 20190305
  Transmission Date: 20190418
  Serious: Yes (Hospitalization, Other)
  Sender: FDA-Public Use
  Company Number: JP-BRISTOL-MYERS SQUIBB COMPANY-BMS-2019-021863

PATIENT
  Age: 59 Year
  Sex: Female
  Weight: 39 kg

DRUGS (2)
  1. NIVOLUMAB [Suspect]
     Active Substance: NIVOLUMAB
     Indication: OESOPHAGEAL SQUAMOUS CELL CARCINOMA
     Dosage: 120 MG, UNK
     Route: 042
     Dates: start: 20190226
  2. IPILIMUMAB [Suspect]
     Active Substance: IPILIMUMAB
     Indication: OESOPHAGEAL SQUAMOUS CELL CARCINOMA
     Dosage: 40 MG, UNK
     Route: 042
     Dates: start: 20190226

REACTIONS (1)
  - Oesophageal obstruction [Recovered/Resolved]

NARRATIVE: CASE EVENT DATE: 20190226
